FAERS Safety Report 4433663-5 (Version None)
Quarter: 2004Q3

REPORT INFORMATION
  Report Type: 
  Country: None (occurrence: None)
  Receive Date: 20040826
  Receipt Date: 20040524
  Transmission Date: 20050211
  Serious: No
  Sender: FDA-Public Use
  Company Number: US-GLAXOSMITHKLINE-A0511860A

PATIENT
  Age: 28 Year
  Sex: Male

DRUGS (2)
  1. AVODART [Suspect]
     Indication: ALOPECIA
     Dosage: .5MG PER DAY
     Route: 048
     Dates: start: 20030801, end: 20030901
  2. PROPECIA [Concomitant]

REACTIONS (2)
  - ERECTILE DYSFUNCTION [None]
  - LIBIDO DECREASED [None]
